FAERS Safety Report 13650426 (Version 1)
Quarter: 2017Q2

REPORT INFORMATION
  Report Type: Spontaneous
  Country: FR (occurrence: FR)
  Receive Date: 20170614
  Receipt Date: 20170614
  Transmission Date: 20170830
  Serious: Yes (Hospitalization)
  Sender: FDA-Public Use
  Company Number: FR-ACCORD-052535

PATIENT
  Age: 69 Year
  Sex: Female

DRUGS (4)
  1. ITRACONAZOLE. [Concomitant]
     Active Substance: ITRACONAZOLE
     Dosage: IN THE MORNING AND IN THE EVENING
  2. TAXOTERE [Suspect]
     Active Substance: DOCETAXEL
     Indication: SQUAMOUS CELL CARCINOMA OF LUNG
     Route: 042
     Dates: start: 20170308, end: 20170329
  3. CISPLATIN ACCORD [Suspect]
     Active Substance: CISPLATIN
     Indication: SQUAMOUS CELL CARCINOMA OF LUNG
     Dosage: STRENGTH: 1 MG/ML
     Route: 042
     Dates: start: 20170308, end: 20170329
  4. INEXIUM [Concomitant]
     Active Substance: ESOMEPRAZOLE
     Dosage: IN THE MORNING

REACTIONS (2)
  - Hyponatraemia [Unknown]
  - Colitis [Recovered/Resolved]

NARRATIVE: CASE EVENT DATE: 20170405
